FAERS Safety Report 6200956-0 (Version None)
Quarter: 2009Q2

REPORT INFORMATION
  Report Type: 
  Country: None (occurrence: None)
  Receive Date: 20090523
  Receipt Date: 20090521
  Transmission Date: 20091009
  Serious: Yes (Other)
  Sender: FDA-Public Use
  Company Number: US-ALEXION-A200900210

PATIENT
  Sex: Female
  Weight: 70.5 kg

DRUGS (13)
  1. SOLIRIS [Suspect]
     Indication: PAROXYSMAL NOCTURNAL HAEMOGLOBINURIA
     Dosage: 600 MG, QW
     Route: 042
     Dates: start: 20090217, end: 20090310
  2. SOLIRIS [Suspect]
     Dosage: 900 MG, Q2W
     Route: 042
     Dates: start: 20090324
  3. LEVAQUIN [Suspect]
     Dosage: UNK
     Route: 042
     Dates: start: 20090224
  4. LEVAQUIN [Suspect]
     Dosage: 500 MG, QD
     Route: 048
  5. SOTALOL HYDROCHLORIDE [Concomitant]
     Dosage: 80 MG, BID
  6. NEXIUM [Concomitant]
     Dosage: 40 MG, QD
  7. FOLIC ACID [Concomitant]
     Dosage: 3 MG, QD
  8. PREDNISONE [Concomitant]
     Dosage: 12.5 MG, QD
  9. ASPIRIN [Concomitant]
     Dosage: 81 MG, QD
  10. ALLOPURINOL [Concomitant]
     Dosage: 100 MG, QD
  11. POTASSIUM CHLORIDE [Concomitant]
     Dosage: UNK
  12. NORCO [Concomitant]
     Dosage: 5/325, 1/2 AT BEDTIME
  13. AUGMENTIN '125' [Concomitant]
     Dosage: UNK
     Dates: start: 20090224

REACTIONS (16)
  - ANAEMIA [None]
  - BLOOD LACTATE DEHYDROGENASE INCREASED [None]
  - BLOOD PRESSURE DECREASED [None]
  - CHEST PAIN [None]
  - CONSTIPATION [None]
  - DIARRHOEA [None]
  - DIZZINESS [None]
  - DRY EYE [None]
  - DRY MOUTH [None]
  - HAEMOLYSIS [None]
  - HAEMORRHOIDS [None]
  - HEADACHE [None]
  - HEART RATE INCREASED [None]
  - NEUTROPENIA [None]
  - PYREXIA [None]
  - SINUSITIS [None]
